FAERS Safety Report 26179025 (Version 1)
Quarter: 2025Q4

REPORT INFORMATION
  Report Type: Spontaneous
  Country: ID (occurrence: ID)
  Receive Date: 20251219
  Receipt Date: 20251219
  Transmission Date: 20260118
  Serious: Yes (Hospitalization, Other)
  Sender: RANBAXY
  Company Number: ID-SUN PHARMACEUTICAL INDUSTRIES LTD-2025RR-542357

PATIENT
  Age: 32 Year
  Sex: Female

DRUGS (3)
  1. MORPHINE [Suspect]
     Active Substance: MORPHINE
     Indication: Spinal anaesthesia
     Dosage: 100 MICROGRAM, UNK
     Route: 037
  2. FENTANYL [Suspect]
     Active Substance: FENTANYL
     Indication: Spinal anaesthesia
     Dosage: 15 MICROGRAM, UNK
     Route: 037
  3. BUPIVACAINE [Suspect]
     Active Substance: BUPIVACAINE
     Indication: Spinal anaesthesia
     Dosage: 1.5 MILLILITER, 1.5 ML OF 0.5% HYPERBARIC BUPIVACAINE, UNK
     Route: 037

REACTIONS (1)
  - Subdural haematoma [Recovering/Resolving]
